FAERS Safety Report 9541382 (Version 1)
Quarter: 2013Q3

REPORT INFORMATION
  Report Type: Spontaneous
  Country: DE (occurrence: DE)
  Receive Date: 20130923
  Receipt Date: 20130923
  Transmission Date: 20140515
  Serious: Yes (Hospitalization, Other)
  Sender: FDA-Public Use
  Company Number: DE-JNJFOC-20130906176

PATIENT
  Age: 50 Year
  Sex: Male
  Weight: 70.9 kg

DRUGS (4)
  1. REGAINE [Suspect]
     Route: 061
  2. REGAINE [Suspect]
     Indication: PRODUCT USED FOR UNKNOWN INDICATION
     Route: 061
  3. CERTICAN [Suspect]
     Indication: RENAL TRANSPLANT
     Route: 065
     Dates: start: 20130702
  4. SANDIMMUN [Concomitant]
     Indication: PRODUCT USED FOR UNKNOWN INDICATION
     Route: 065
     Dates: start: 20130702

REACTIONS (4)
  - Complications of transplanted kidney [Not Recovered/Not Resolved]
  - Renal stone removal [Unknown]
  - Hypovolaemia [Not Recovered/Not Resolved]
  - Hypotension [Not Recovered/Not Resolved]
